APPROVED DRUG PRODUCT: MOEXIPRIL HYDROCHLORIDE
Active Ingredient: MOEXIPRIL HYDROCHLORIDE
Strength: 15MG
Dosage Form/Route: TABLET;ORAL
Application: A090416 | Product #002 | TE Code: AB
Applicant: GLENMARK PHARMACEUTICALS LTD
Approved: Mar 30, 2010 | RLD: No | RS: No | Type: RX